FAERS Safety Report 6788209-3 (Version None)
Quarter: 2010Q2

REPORT INFORMATION
  Report Type: 
  Country: None (occurrence: None)
  Receive Date: 20100623
  Receipt Date: 20080225
  Transmission Date: 20101027
  Serious: No
  Sender: FDA-Public Use
  Company Number: US-PFIZER INC-2008017858

PATIENT
  Sex: Male
  Weight: 113.63 kg

DRUGS (8)
  1. SUTENT [Suspect]
     Indication: RENAL CELL CARCINOMA
     Dates: start: 20070501
  2. CATAPRES [Concomitant]
  3. TOPROL-XL [Concomitant]
  4. ALL OTHER THERAPEUTIC PRODUCTS [Concomitant]
  5. ALISKIREN [Concomitant]
  6. PAXIL [Concomitant]
  7. NEXIUM [Concomitant]
  8. ARIXTRA [Concomitant]

REACTIONS (3)
  - INSOMNIA [None]
  - PRURITUS GENITAL [None]
  - RASH [None]
